FAERS Safety Report 20137796 (Version 2)
Quarter: 2022Q1

REPORT INFORMATION
  Report Type: Other
  Country: FR (occurrence: None)
  Receive Date: 20211202
  Receipt Date: 20220221
  Transmission Date: 20220423
  Serious: Yes (Other)
  Sender: FDA-Public Use
  Company Number: FR-ROCHE-2844423

PATIENT
  Age: 75 Year
  Sex: Female
  Weight: 115 kg

DRUGS (8)
  1. ATEZOLIZUMAB [Suspect]
     Active Substance: ATEZOLIZUMAB
     Indication: Non-small cell lung cancer metastatic
     Route: 041
     Dates: start: 20191024
  2. FLECAINIDE [Concomitant]
     Active Substance: FLECAINIDE
  3. IRBESARTAN [Concomitant]
     Active Substance: IRBESARTAN
  4. ROSUVASTATIN [Concomitant]
     Active Substance: ROSUVASTATIN
  5. CARBOPLATIN [Concomitant]
     Active Substance: CARBOPLATIN
  6. PACLITAXEL [Concomitant]
     Active Substance: PACLITAXEL
  7. COLCHICINE [Concomitant]
     Active Substance: COLCHICINE
     Dates: start: 20210422
  8. DAFALGAN CODEINE [Concomitant]
     Active Substance: ACETAMINOPHEN\CODEINE PHOSPHATE
     Dates: start: 20190919

REACTIONS (1)
  - Hepatic cytolysis [Recovered/Resolved]

NARRATIVE: CASE EVENT DATE: 20210330
